FAERS Safety Report 16195052 (Version 1)
Quarter: 2019Q2

REPORT INFORMATION
  Report Type: Spontaneous
  Country: IT (occurrence: IT)
  Receive Date: 20190415
  Receipt Date: 20190415
  Transmission Date: 20190711
  Serious: Yes (Other)
  Sender: FDA-Public Use
  Company Number: IT-AUROBINDO-AUR-APL-2019-019404

PATIENT

DRUGS (1)
  1. AMOXICILLIN. [Suspect]
     Active Substance: AMOXICILLIN
     Indication: OTITIS MEDIA ACUTE
     Dosage: 8 PERCENT, TOTAL
     Route: 048
     Dates: start: 20181221

REACTIONS (2)
  - Medication error [Recovering/Resolving]
  - Dose calculation error [Recovering/Resolving]

NARRATIVE: CASE EVENT DATE: 20181221
